FAERS Safety Report 4423811-5 (Version None)
Quarter: 2004Q3

REPORT INFORMATION
  Report Type: 
  Country: None (occurrence: None)
  Receive Date: 20040714
  Receipt Date: 20040329
  Transmission Date: 20050211
  Serious: Yes (Other)
  Sender: FDA-Public Use
  Company Number: HQWYE303631MAR04

PATIENT
  Age: 49 Year
  Sex: Female
  Weight: 80.81 kg

DRUGS (6)
  1. ALAVERT [Suspect]
     Indication: HYPERSENSITIVITY
     Dosage: 1 TABLET 1X PER 1 DAY, ORAL
     Route: 048
     Dates: start: 20040318, end: 20040323
  2. CITRACAL (CALCIUM CARBONATE) [Concomitant]
  3. MULTIVITAMINS, PLAIN (MULTIVITAMINS, PLAIN) [Concomitant]
  4. ACCOLATE [Concomitant]
  5. PREMARIN [Concomitant]
  6. PRILOSEC [Concomitant]

REACTIONS (2)
  - NAUSEA [None]
  - VOMITING [None]
